FAERS Safety Report 18522495 (Version 2)
Quarter: 2020Q4

REPORT INFORMATION
  Report Type: Spontaneous
  Country: JP (occurrence: JP)
  Receive Date: 20201119
  Receipt Date: 20201209
  Transmission Date: 20210114
  Serious: Yes (Other)
  Sender: FDA-Public Use
  Company Number: JP-009507513-2011JPN001257J

PATIENT
  Age: 86 Year
  Sex: Female

DRUGS (1)
  1. KEYTRUDA [Suspect]
     Active Substance: PEMBROLIZUMAB
     Indication: NON-SMALL CELL LUNG CANCER
     Dosage: UNK
     Route: 041

REACTIONS (2)
  - Nephrotic syndrome [Recovering/Resolving]
  - IgA nephropathy [Recovering/Resolving]
